FAERS Safety Report 6884387-6 (Version None)
Quarter: 2010Q3

REPORT INFORMATION
  Report Type: 
  Country: None (occurrence: None)
  Receive Date: 20100729
  Receipt Date: 20070701
  Transmission Date: 20110219
  Serious: No
  Sender: FDA-Public Use
  Company Number: US-PFIZER INC-2007054755

PATIENT
  Sex: Female
  Weight: 77.3 kg

DRUGS (1)
  1. CELEBREX [Suspect]
     Indication: PAIN
     Dates: start: 20070701

REACTIONS (4)
  - ABDOMINAL DISCOMFORT [None]
  - ERUCTATION [None]
  - NAUSEA [None]
  - VOMITING [None]
